FAERS Safety Report 5962107-7 (Version None)
Quarter: 2008Q4

REPORT INFORMATION
  Report Type: 
  Country: None (occurrence: None)
  Receive Date: 20081121
  Receipt Date: 20081112
  Transmission Date: 20090506
  Serious: Yes (Hospitalization)
  Sender: FDA-Public Use
  Company Number: PHHY2008JP26492

PATIENT
  Age: 47 Year
  Sex: Male

DRUGS (10)
  1. TEGRETOL [Suspect]
     Indication: BRAIN NEOPLASM
     Dosage: 400 MG DAILY
     Route: 048
     Dates: start: 20080906, end: 20080930
  2. TEGRETOL [Suspect]
     Indication: HYPERKINESIA
  3. TEGRETOL [Suspect]
     Indication: PORIOMANIA
  4. SEROQUEL [Suspect]
     Indication: HYPERKINESIA
     Dosage: 100 MG, TID
     Route: 048
     Dates: start: 20080913, end: 20081010
  5. SEROQUEL [Suspect]
     Dosage: 75 MG, DAILY
     Dates: start: 20081017
  6. DORAL [Suspect]
     Indication: INSOMNIA
     Dosage: 15 MG, QD
     Route: 048
     Dates: start: 20080929, end: 20081027
  7. RISPERDAL [Suspect]
     Indication: HYPERKINESIA
     Dosage: 2 MG,DAILY
     Route: 048
     Dates: start: 20080804, end: 20081021
  8. ROHYPNOL [Concomitant]
     Indication: INSOMNIA
     Dosage: 2 MG, UNK
     Dates: start: 20080804
  9. SILECE [Concomitant]
     Indication: INSOMNIA
     Dosage: 1 MG, UNK
     Route: 048
     Dates: start: 20081027
  10. MAGMITT [Concomitant]
     Indication: CONSTIPATION
     Dosage: 750 MG, UNK
     Route: 048
     Dates: start: 20080918

REACTIONS (13)
  - ALANINE AMINOTRANSFERASE INCREASED [None]
  - ASPARTATE AMINOTRANSFERASE INCREASED [None]
  - BLOOD ALKALINE PHOSPHATASE INCREASED [None]
  - BLOOD BILIRUBIN INCREASED [None]
  - DRUG ERUPTION [None]
  - DRUG RASH WITH EOSINOPHILIA AND SYSTEMIC SYMPTOMS [None]
  - ECZEMA [None]
  - ERYTHEMA MULTIFORME [None]
  - GAMMA-GLUTAMYLTRANSFERASE INCREASED [None]
  - HEPATIC FUNCTION ABNORMAL [None]
  - LYMPHOCYTE STIMULATION TEST POSITIVE [None]
  - PARAPSORIASIS [None]
  - RASH [None]
